FAERS Safety Report 9812750 (Version 1)
Quarter: 2014Q1

REPORT INFORMATION
  Report Type: Spontaneous
  Country: JP (occurrence: JP)
  Receive Date: 20140113
  Receipt Date: 20140113
  Transmission Date: 20141002
  Serious: Yes (Hospitalization)
  Sender: FDA-Public Use
  Company Number: JP-B.I. PHARMACEUTICALS,INC./RIDGEFIELD-2014-BI-01237NB

PATIENT
  Age: 75 Year
  Sex: Male

DRUGS (3)
  1. PERSANTIN [Suspect]
     Indication: PROPHYLAXIS
     Route: 065
  2. PERSANTIN [Suspect]
     Route: 065
  3. PLAVIX [Concomitant]
     Indication: PROPHYLAXIS
     Dosage: NR
     Route: 065

REACTIONS (1)
  - Gastrointestinal disorder [Unknown]
